FAERS Safety Report 15291452 (Version 4)
Quarter: 2019Q2

REPORT INFORMATION
  Report Type: Spontaneous
  Country: US (occurrence: US)
  Receive Date: 20180817
  Receipt Date: 20190410
  Transmission Date: 20190711
  Serious: No
  Sender: FDA-Public Use
  Company Number: US-PFIZER INC-2018330515

PATIENT
  Age: 61 Year
  Sex: Male
  Weight: 95.25 kg

DRUGS (4)
  1. VIAGRA [Suspect]
     Active Substance: SILDENAFIL CITRATE
     Dosage: 100 MG, 1X/DAY (100MG ONCE A DAY OR MAY HAVE TO TAKE A LITTLE BIT MORE TO GET THE FULL EFFECT)
     Route: 048
     Dates: start: 2018
  2. FLOVENT [Concomitant]
     Active Substance: FLUTICASONE PROPIONATE
     Dosage: 4 MG, UNK
  3. VIAGRA [Suspect]
     Active Substance: SILDENAFIL CITRATE
     Dosage: 1.5 DF, UNK [1.5 TABLETS SOMETIMES TO GET THE FULL EFFECT ]
  4. VIAGRA [Suspect]
     Active Substance: SILDENAFIL CITRATE
     Indication: ERECTILE DYSFUNCTION
     Dosage: 100 MG, AS NEEDED (100MG TABLET, AS NEEDED, BEFORE INTERCOURSE)
     Route: 048

REACTIONS (2)
  - Therapeutic product effect incomplete [Recovering/Resolving]
  - Intentional overdose [Unknown]

NARRATIVE: CASE EVENT DATE: 201711
